FAERS Safety Report 13863529 (Version 1)
Quarter: 2017Q3

REPORT INFORMATION
  Report Type: Spontaneous
  Country: US (occurrence: US)
  Receive Date: 20170814
  Receipt Date: 20170814
  Transmission Date: 20171127
  Serious: No
  Sender: FDA-Public Use
  Company Number: US-PFIZER INC-2017347226

PATIENT
  Sex: Female

DRUGS (5)
  1. METOPROLOL SUCCINATE. [Suspect]
     Active Substance: METOPROLOL SUCCINATE
     Dosage: 25 MG, DAILY
  2. AMLODIPINE BESILATE [Suspect]
     Active Substance: AMLODIPINE BESYLATE
     Dosage: 5 MG, DAILY
  3. GABAPENTIN. [Suspect]
     Active Substance: GABAPENTIN
     Dosage: 100 MG, 3X/DAY
  4. ATORVASTATIN CALCIUM. [Suspect]
     Active Substance: ATORVASTATIN CALCIUM
     Dosage: 20 MG, DAILY
  5. FENTANYL. [Suspect]
     Active Substance: FENTANYL
     Dosage: 50 UG, UNK (50MCG/HR)

REACTIONS (27)
  - Pain in extremity [Unknown]
  - Arthralgia [Unknown]
  - Joint swelling [Unknown]
  - Red cell distribution width increased [Unknown]
  - Nasal congestion [Unknown]
  - Depression [Unknown]
  - Paraesthesia [Unknown]
  - Back pain [Unknown]
  - Balance disorder [Unknown]
  - Musculoskeletal pain [Unknown]
  - Constipation [Unknown]
  - Red blood cell count decreased [Unknown]
  - Joint range of motion decreased [Unknown]
  - Pain [Unknown]
  - Haemoglobin decreased [Unknown]
  - Nodal osteoarthritis [Unknown]
  - Musculoskeletal stiffness [Unknown]
  - Joint stiffness [Unknown]
  - Dizziness [Unknown]
  - Foot deformity [Unknown]
  - Muscle disorder [Unknown]
  - Peripheral swelling [Unknown]
  - Contusion [Unknown]
  - Dry mouth [Unknown]
  - Dyspepsia [Unknown]
  - Hypoaesthesia [Unknown]
  - Synovitis [Unknown]
